FAERS Safety Report 6712935-5 (Version None)
Quarter: 2010Q2

REPORT INFORMATION
  Report Type: 
  Country: None (occurrence: None)
  Receive Date: 20100505
  Receipt Date: 20100505
  Transmission Date: 20101027
  Serious: Yes (Other)
  Sender: FDA-Public Use
  Company Number: None

PATIENT
  Sex: Female

DRUGS (1)
  1. HYDROMORPHONE HCL [Suspect]
     Indication: PAIN
     Dosage: 1MG Q10MIN IV
     Route: 042

REACTIONS (7)
  - BLOOD PRESSURE DECREASED [None]
  - MUSCLE TIGHTNESS [None]
  - OXYGEN SATURATION DECREASED [None]
  - PNEUMONIA ASPIRATION [None]
  - SNORING [None]
  - TREMOR [None]
  - UNRESPONSIVE TO STIMULI [None]
